FAERS Safety Report 9228031 (Version 1)
Quarter: 2013Q2

REPORT INFORMATION
  Report Type: Spontaneous
  Country: US (occurrence: US)
  Receive Date: 20130412
  Receipt Date: 20130412
  Transmission Date: 20140414
  Serious: No
  Sender: FDA-Public Use
  Company Number: US-BAYER-2013-045506

PATIENT
  Age: 20 Year
  Sex: Female
  Weight: 59 kg

DRUGS (2)
  1. ALEVE TABLET [Suspect]
     Indication: PYREXIA
     Route: 048
  2. ALEVE TABLET [Suspect]
     Indication: HEADACHE

REACTIONS (2)
  - Incorrect dose administered [None]
  - Drug ineffective [None]
